FAERS Safety Report 5332864-1 (Version None)
Quarter: 2007Q2

REPORT INFORMATION
  Report Type: 
  Country: None (occurrence: None)
  Receive Date: 20070521
  Receipt Date: 20070508
  Transmission Date: 20071010
  Serious: Yes (Other)
  Sender: FDA-Public Use
  Company Number: 2007-01329

PATIENT
  Age: 60 Year
  Sex: Male

DRUGS (2)
  1. VELCADE [Suspect]
     Indication: B-CELL LYMPHOMA
     Dosage: 1.50 MG/M2, INTRAVENOUS
     Route: 042
     Dates: start: 20060101, end: 20060301
  2. RITUXIMAB (RITUXIMAB) [Suspect]
     Indication: B-CELL LYMPHOMA
     Dates: start: 20060301

REACTIONS (4)
  - AMAUROSIS [None]
  - MACULAR OEDEMA [None]
  - NEUROPATHY PERIPHERAL [None]
  - THROMBOCYTOPENIA [None]
